FAERS Safety Report 16370469 (Version 2)
Quarter: 2019Q4

REPORT INFORMATION
  Report Type: Spontaneous
  Country: DK (occurrence: DK)
  Receive Date: 20190530
  Receipt Date: 20191015
  Transmission Date: 20200122
  Serious: Yes (Hospitalization)
  Sender: FDA-Public Use
  Company Number: DK-AXELLIA-002447

PATIENT
  Age: 49 Year
  Sex: Male

DRUGS (1)
  1. VORICONAZOLE. [Suspect]
     Active Substance: VORICONAZOLE
     Indication: BRONCHOPULMONARY ASPERGILLOSIS
     Dosage: DOSED BY WEIGHT, 400 MG X 2, INCREASED TO 600 MG X 2

REACTIONS (2)
  - Drug level above therapeutic [Unknown]
  - Periostitis [Recovered/Resolved]
